FAERS Safety Report 15246867 (Version 3)
Quarter: 2025Q4

REPORT INFORMATION
  Report Type: Spontaneous
  Country: CA (occurrence: CA)
  Receive Date: 20180806
  Receipt Date: 20251006
  Transmission Date: 20260118
  Serious: Yes (Other)
  Sender: NOVARTIS
  Company Number: PHHY2018CA064397

PATIENT
  Age: 26 Year
  Sex: Female

DRUGS (16)
  1. AFINITOR [Suspect]
     Active Substance: EVEROLIMUS
     Indication: Phaeochromocytoma
     Dosage: UNK
     Route: 065
  2. AFINITOR [Suspect]
     Active Substance: EVEROLIMUS
     Indication: Paraganglion neoplasm malignant
     Dosage: UNK
     Route: 065
  3. TOPOTECAN HYDROCHLORIDE [Suspect]
     Active Substance: TOPOTECAN HYDROCHLORIDE
     Indication: Phaeochromocytoma
     Dosage: UNK
     Route: 065
  4. TOPOTECAN HYDROCHLORIDE [Suspect]
     Active Substance: TOPOTECAN HYDROCHLORIDE
     Indication: Paraganglion neoplasm malignant
  5. CYCLOPHOSPHAMIDE [Suspect]
     Active Substance: CYCLOPHOSPHAMIDE
     Indication: Phaeochromocytoma
     Dosage: 2000 MG
     Route: 065
  6. CYCLOPHOSPHAMIDE [Suspect]
     Active Substance: CYCLOPHOSPHAMIDE
     Indication: Paraganglion neoplasm malignant
  7. CYCLOPHOSPHAMIDE [Suspect]
     Active Substance: CYCLOPHOSPHAMIDE
     Indication: Phaeochromocytoma malignant
  8. SUNITINIB MALATE [Suspect]
     Active Substance: SUNITINIB MALATE
     Indication: Paraganglion neoplasm malignant
     Dosage: UNK
     Route: 065
  9. TEMODAL [Suspect]
     Active Substance: TEMOZOLOMIDE
     Indication: Phaeochromocytoma
     Dosage: UNK
     Route: 065
  10. TEMODAL [Suspect]
     Active Substance: TEMOZOLOMIDE
     Indication: Paraganglion neoplasm malignant
  11. TEMODAL [Suspect]
     Active Substance: TEMOZOLOMIDE
     Indication: Phaeochromocytoma malignant
  12. MESNA [Suspect]
     Active Substance: MESNA
     Indication: Phaeochromocytoma
     Dosage: UNK
     Route: 042
  13. MESNA [Suspect]
     Active Substance: MESNA
     Indication: Paraganglion neoplasm malignant
  14. VANDETANIB [Suspect]
     Active Substance: VANDETANIB
     Indication: Phaeochromocytoma
     Dosage: UNK
     Route: 065
  15. VANDETANIB [Suspect]
     Active Substance: VANDETANIB
     Indication: Paraganglion neoplasm malignant
  16. VANDETANIB [Suspect]
     Active Substance: VANDETANIB
     Indication: Phaeochromocytoma malignant

REACTIONS (8)
  - Metastases to central nervous system [Recovering/Resolving]
  - Metastases to bone [Recovering/Resolving]
  - Metastases to liver [Recovering/Resolving]
  - Headache [Recovering/Resolving]
  - Pancytopenia [Recovering/Resolving]
  - Insomnia [Recovering/Resolving]
  - Product use in unapproved indication [Recovering/Resolving]
  - Off label use [Recovering/Resolving]
